FAERS Safety Report 7325720-0 (Version None)
Quarter: 2011Q1

REPORT INFORMATION
  Report Type: 
  Country: None (occurrence: None)
  Receive Date: 20110302
  Receipt Date: 20110221
  Transmission Date: 20110831
  Serious: Yes (Other)
  Sender: FDA-Public Use
  Company Number: AU-ASTRAZENECA-2011SE04210

PATIENT
  Age: 70 Year
  Sex: Female

DRUGS (2)
  1. ARIMIDEX [Suspect]
     Dosage: IN THE MORNING
     Route: 048
     Dates: start: 20110101
  2. ARIMIDEX [Suspect]
     Dosage: AT NIGHT
     Route: 048

REACTIONS (5)
  - PULMONARY MASS [None]
  - CHEST X-RAY ABNORMAL [None]
  - BILIARY COLIC [None]
  - DYSGEUSIA [None]
  - APPETITE DISORDER [None]
